FAERS Safety Report 24043668 (Version 1)
Quarter: 2024Q3

REPORT INFORMATION
  Report Type: Spontaneous
  Country: NL (occurrence: NL)
  Receive Date: 20240703
  Receipt Date: 20240703
  Transmission Date: 20241016
  Serious: Yes (Other)
  Sender: CELLTRION
  Company Number: NL-CELLTRION INC.-2024NL015806

PATIENT

DRUGS (1)
  1. ADALIMUMAB [Suspect]
     Active Substance: ADALIMUMAB\ISOPROPYL ALCOHOL
     Indication: Psoriasis
     Dosage: 1 DF, EVERY 2 WEEKS
     Dates: start: 20220805

REACTIONS (1)
  - Toxic skin eruption [Recovered/Resolved]
